FAERS Safety Report 4509973-X (Version None)
Quarter: 2004Q4

REPORT INFORMATION
  Report Type: 
  Country: None (occurrence: None)
  Receive Date: 20041124
  Receipt Date: 20041117
  Transmission Date: 20050328
  Serious: Yes (Life-Threatening)
  Sender: FDA-Public Use
  Company Number: AU-ABBOTT-04P-008-0280886-00

PATIENT
  Age: 55 Year
  Sex: Male

DRUGS (5)
  1. EPILIM TABLETS [Suspect]
     Indication: SCHIZOPHRENIA
     Dates: start: 20040424, end: 20040429
  2. EPILIM TABLETS [Suspect]
     Dates: start: 20040101
  3. QUETIAPINE [Suspect]
     Indication: DRUG USE FOR UNKNOWN INDICATION
     Route: 048
     Dates: start: 20040424, end: 20040429
  4. COLOXYL WITH SENNA [Concomitant]
     Indication: DRUG USE FOR UNKNOWN INDICATION
  5. LACTULOSE [Concomitant]
     Indication: DRUG USE FOR UNKNOWN INDICATION

REACTIONS (6)
  - DRY MOUTH [None]
  - HYPERTONIA [None]
  - IMMOBILE [None]
  - NEUROLEPTIC MALIGNANT SYNDROME [None]
  - TACHYCARDIA [None]
  - TACHYPNOEA [None]
